FAERS Safety Report 6926917-1 (Version None)
Quarter: 2010Q3

REPORT INFORMATION
  Report Type: 
  Country: None (occurrence: None)
  Receive Date: 20100816
  Receipt Date: 20100701
  Transmission Date: 20110219
  Serious: No
  Sender: FDA-Public Use
  Company Number: US-ABBOTT-10P-163-0654766-00

PATIENT
  Sex: Male
  Weight: 49.94 kg

DRUGS (3)
  1. SIMCOR [Suspect]
     Indication: BLOOD CHOLESTEROL INCREASED
     Dosage: 500/20MG AT BED TIME
     Dates: start: 20100628
  2. SIMCOR [Suspect]
     Indication: BLOOD GLUCOSE INCREASED
  3. ASPIRIN [Concomitant]
     Indication: PRODUCT USED FOR UNKNOWN INDICATION
     Dosage: HALF HOUR BEFORE SIMCOR

REACTIONS (4)
  - BURNING SENSATION [None]
  - ERYTHEMA [None]
  - INSOMNIA [None]
  - PALPITATIONS [None]
